FAERS Safety Report 17369564 (Version 2)
Quarter: 2020Q1

REPORT INFORMATION
  Report Type: Spontaneous
  Country: US (occurrence: US)
  Receive Date: 20200204
  Receipt Date: 20200225
  Transmission Date: 20200409
  Serious: No
  Sender: FDA-Public Use
  Company Number: US-DSJP-DSU-2020-103426

PATIENT

DRUGS (1)
  1. TURALIO [Suspect]
     Active Substance: PEXIDARTINIB HYDROCHLORIDE
     Indication: SYNOVITIS
     Dosage: 200 MG, BID
     Route: 048
     Dates: start: 20200118

REACTIONS (5)
  - Off label use [Unknown]
  - Influenza like illness [Unknown]
  - Ill-defined disorder [Unknown]
  - Sinusitis [Unknown]
  - Disease progression [Unknown]

NARRATIVE: CASE EVENT DATE: 2020
